FAERS Safety Report 23511692 (Version 1)
Quarter: 2024Q1

REPORT INFORMATION
  Report Type: Spontaneous
  Country: IN (occurrence: None)
  Receive Date: 20240212
  Receipt Date: 20240212
  Transmission Date: 20240410
  Serious: Yes (Other)
  Sender: FDA-Public Use
  Company Number: IN-ARIS GLOBAL-SUP202401-000373

PATIENT
  Sex: Female

DRUGS (15)
  1. TOPIRAMATE [Suspect]
     Active Substance: TOPIRAMATE
     Indication: Migraine
     Dosage: 100MG FOR 12 WEEK
  2. VALPROATE [Suspect]
     Active Substance: VALPROIC ACID
     Indication: Migraine
     Dosage: 1000MG FOR 6 WEEK
  3. AMITRIPTYLINE [Suspect]
     Active Substance: AMITRIPTYLINE
     Indication: Migraine
     Dosage: 25MG FOR 6 WEEK
  4. AMITRIPTYLINE [Suspect]
     Active Substance: AMITRIPTYLINE
     Dosage: 50MG
  5. ERGOTAMINE [Suspect]
     Active Substance: CAFFEINE\ERGOTAMINE\ERGOTAMINE TARTRATE
     Indication: Migraine
     Dosage: 1MG
  6. TRAMADOL [Suspect]
     Active Substance: TRAMADOL\TRAMADOL HYDROCHLORIDE
     Indication: Migraine
     Dosage: 50?100 MG
  7. RIZATRIPTAN [Suspect]
     Active Substance: RIZATRIPTAN
     Indication: Migraine
     Dosage: 10MG
  8. NAPROXEN\SUMATRIPTAN SUCCINATE [Suspect]
     Active Substance: NAPROXEN\SUMATRIPTAN SUCCINATE
     Indication: Migraine
     Dosage: 85/500 MG
  9. FLUNARIZINE [Concomitant]
     Active Substance: FLUNARIZINE
     Dosage: 10MG
  10. FLUNARIZINE [Concomitant]
     Active Substance: FLUNARIZINE
     Dosage: 25MG
  11. PROPRANOLOL [Concomitant]
     Active Substance: PROPRANOLOL HYDROCHLORIDE
     Dosage: 40MG
  12. ACETAMINOPHEN\TRAMADOL [Concomitant]
     Active Substance: ACETAMINOPHEN\TRAMADOL
     Dosage: NOT PROVIDED
  13. Rizatriptan and Prednisolone [Concomitant]
     Dosage: NOT PROVIDED
  14. PREDNISOLONE [Concomitant]
     Active Substance: PREDNISOLONE
     Dosage: NOT PROVIDED
  15. DICLOFENAC [Concomitant]
     Active Substance: DICLOFENAC
     Dosage: 100MG

REACTIONS (2)
  - Serotonin syndrome [Recovered/Resolved]
  - Medication overuse headache [Recovered/Resolved]
